FAERS Safety Report 8737884 (Version 4)
Quarter: 2013Q4

REPORT INFORMATION
  Report Type: Report from Study
  Country: JP (occurrence: JP)
  Receive Date: 20120823
  Receipt Date: 20131106
  Transmission Date: 20140711
  Serious: Yes (Hospitalization, Other)
  Sender: FDA-Public Use
  Company Number: JP-009507513-1208JPN003963

PATIENT
  Age: 64 Year
  Sex: Female
  Weight: 59 kg

DRUGS (4)
  1. PEGINTRON [Suspect]
     Indication: HEPATITIS C
     Dosage: 1.5 MICROGRAM PER KILOGRAM, QW
     Route: 058
     Dates: start: 20120712, end: 20120714
  2. REBETOL [Suspect]
     Indication: HEPATITIS C
     Dosage: 600 MG, QD
     Route: 048
     Dates: start: 20120712, end: 20120714
  3. TELAVIC [Suspect]
     Indication: HEPATITIS C
     Dosage: 2250MG,QD.
     Route: 048
     Dates: start: 20120712, end: 20120714
  4. URSO [Concomitant]
     Indication: HEPATITIS C
     Dosage: 600 MG, QD, FORMULATION: POR
     Route: 048

REACTIONS (2)
  - Femoral neck fracture [Recovered/Resolved with Sequelae]
  - Fall [Recovered/Resolved with Sequelae]
